FAERS Safety Report 6314461-4 (Version None)
Quarter: 2009Q3

REPORT INFORMATION
  Report Type: 
  Country: None (occurrence: None)
  Receive Date: 20090819
  Receipt Date: 20090811
  Transmission Date: 20100115
  Serious: Yes (Hospitalization)
  Sender: FDA-Public Use
  Company Number: JP-BRISTOL-MYERS SQUIBB COMPANY-14713317

PATIENT
  Age: 62 Year
  Sex: Female
  Weight: 47 kg

DRUGS (3)
  1. ERBITUX [Suspect]
     Indication: COLORECTAL CANCER RECURRENT
     Dosage: 1ST INF ON 09MAR09;7TH + MOST RECENT INF ON 20MAY09(350MG/DAY) 16MAR09-15APR09:350MG/WEEK(29DAYS)
     Route: 042
     Dates: start: 20090309, end: 20090520
  2. IRINOTECAN HCL [Suspect]
     Indication: COLORECTAL CANCER RECURRENT
     Dosage: 1ST INF ON 09MAR-01APR09;5TH + MOST RECENT INF ON 20MAY-20MAY09;
     Route: 042
     Dates: start: 20090309, end: 20090520
  3. DIPHENHYDRAMINE HCL [Concomitant]
     Indication: PREMEDICATION
     Dosage: 09MAR-15APR09(1 IN 1 WK); 20MAY-20MAY09(1 IN 1 D)
     Route: 048
     Dates: start: 20090309, end: 20090520

REACTIONS (1)
  - DECREASED APPETITE [None]
